FAERS Safety Report 9880645 (Version 1)
Quarter: 2014Q1

REPORT INFORMATION
  Report Type: Report from Study
  Country: DE (occurrence: DE)
  Receive Date: 20140207
  Receipt Date: 20140207
  Transmission Date: 20141002
  Serious: Yes (Hospitalization)
  Sender: FDA-Public Use
  Company Number: DE-UCBSA-111553

PATIENT
  Sex: Male

DRUGS (4)
  1. CIMZIA [Suspect]
     Indication: RHEUMATOID ARTHRITIS
     Dosage: 400 MG
     Dates: start: 201104, end: 2011
  2. CIMZIA [Suspect]
     Indication: RHEUMATOID ARTHRITIS
     Dosage: 200 MG
     Dates: start: 2011, end: 201209
  3. MTX [Concomitant]
     Indication: RHEUMATOID ARTHRITIS
     Dosage: DOSE: 5
     Dates: end: 2011
  4. MTX [Concomitant]
     Indication: RHEUMATOID ARTHRITIS
     Dosage: DOSE: 7.5
     Dates: start: 2011

REACTIONS (1)
  - Cyst [Unknown]
